FAERS Safety Report 4269946-1 (Version None)
Quarter: 2004Q1

REPORT INFORMATION
  Report Type: 
  Country: None (occurrence: None)
  Receive Date: 20040114
  Receipt Date: 20040107
  Transmission Date: 20041129
  Serious: Yes (Other)
  Sender: FDA-Public Use
  Company Number: PHBS2004BE00661

PATIENT
  Age: 71 Year
  Sex: Male

DRUGS (7)
  1. LESCOL XL [Suspect]
     Indication: HYPERCHOLESTEROLAEMIA
     Dosage: 80 MG/DAY
     Route: 048
     Dates: start: 20030201, end: 20030201
  2. LESCOL XL [Suspect]
     Dosage: 80 MG, ONCE/SINGLE
     Route: 048
     Dates: start: 20031101, end: 20031101
  3. FUROSEMIDE [Concomitant]
     Dosage: 40 MG, UNK
  4. ALDACTONE [Concomitant]
     Dosage: 50 MG, UNK
  5. SINTROM [Concomitant]
  6. ISOTEN [Concomitant]
  7. ZESTRIL [Concomitant]
     Dosage: 1.5 TABLET, UNK
     Route: 048

REACTIONS (6)
  - DIARRHOEA [None]
  - FALL [None]
  - GASTRIC DISORDER [None]
  - GASTROINTESTINAL DISORDER [None]
  - HYPOTENSION [None]
  - INJURY [None]
